FAERS Safety Report 19135997 (Version 2)
Quarter: 2021Q2

REPORT INFORMATION
  Report Type: Spontaneous
  Country: US (occurrence: US)
  Receive Date: 20210414
  Receipt Date: 20210527
  Transmission Date: 20210717
  Serious: No
  Sender: FDA-Public Use
  Company Number: US-SA-2021SA102154

PATIENT

DRUGS (1)
  1. LOVENOX [Suspect]
     Active Substance: ENOXAPARIN SODIUM
     Dosage: DRUG STRUCTURE DOSAGE : NA DRUG INTERVAL DOSAGE : NA DRUG TREATMENT DURATION: NA

REACTIONS (2)
  - Accidental exposure to product [Unknown]
  - Device malfunction [Unknown]
